FAERS Safety Report 4542014-7 (Version None)
Quarter: 2004Q4

REPORT INFORMATION
  Report Type: 
  Country: None (occurrence: None)
  Receive Date: 20041230
  Receipt Date: 20041216
  Transmission Date: 20050328
  Serious: Yes (Death)
  Sender: FDA-Public Use
  Company Number: JP-MERCK-0412USA02549

PATIENT
  Age: 53 Year
  Sex: Male

DRUGS (5)
  1. DECADRON [Suspect]
     Indication: CHEMOTHERAPY
     Route: 048
  2. CYCLOPHOSPHAMIDE [Concomitant]
     Route: 048
  3. [THERAPY UNSPECIFIED] [Concomitant]
     Route: 065
  4. ETOPOSIDE [Concomitant]
     Route: 065
  5. CYTARABINE [Concomitant]
     Route: 065

REACTIONS (3)
  - DISEASE PROGRESSION [None]
  - MANTLE CELL LYMPHOMA [None]
  - PNEUMONIA [None]
